FAERS Safety Report 14313295 (Version 1)
Quarter: 2017Q4

REPORT INFORMATION
  Report Type: Spontaneous
  Country: PL (occurrence: PL)
  Receive Date: 20171221
  Receipt Date: 20171221
  Transmission Date: 20180321
  Serious: Yes (Life-Threatening, Hospitalization)
  Sender: FDA-Public Use
  Company Number: PL-CIPLA LTD.-2017PL24155

PATIENT

DRUGS (14)
  1. LOW-MOLECULAR-WEIGHT HEPARIN [Suspect]
     Active Substance: UNSPECIFIED INGREDIENT
     Dosage: 0.4 ML, QD
     Route: 065
  2. CARVEDILOL. [Suspect]
     Active Substance: CARVEDILOL
     Indication: PRODUCT USED FOR UNKNOWN INDICATION
     Dosage: 12.5 MG, QD
     Route: 065
  3. CIPROFLOXACIN. [Suspect]
     Active Substance: CIPROFLOXACIN
     Dosage: 400 MG (200 MG, 2X PER DAY)
     Route: 042
  4. ENCORTONE [Suspect]
     Active Substance: PREDNISONE
     Dosage: 10 MG, PER DAY
     Route: 065
  5. CALCIUM [Concomitant]
     Active Substance: CALCIUM
     Dosage: UNK
     Route: 065
  6. CARVEDILOL. [Suspect]
     Active Substance: CARVEDILOL
     Dosage: 18.75 MG, QD
     Route: 065
  7. RIVAROXABAN [Suspect]
     Active Substance: RIVAROXABAN
     Dosage: 15 MG, QD
     Route: 065
  8. VITAMIN D [Concomitant]
     Active Substance: CHOLECALCIFEROL
     Dosage: UNK
     Route: 065
  9. ENCORTONE [Suspect]
     Active Substance: PREDNISONE
     Dosage: 30 MG, PER DAY
     Route: 065
  10. LEVOTHYROXINE. [Suspect]
     Active Substance: LEVOTHYROXINE
     Dosage: 25 ?G, QD
     Route: 065
  11. ENCORTONE [Suspect]
     Active Substance: PREDNISONE
     Dosage: 20 MG, PER DAY
     Route: 065
  12. FUROSEMIDE. [Suspect]
     Active Substance: FUROSEMIDE
     Dosage: 40 MG, QD
     Route: 065
  13. PANTOPRAZOLE [Suspect]
     Active Substance: PANTOPRAZOLE
     Dosage: 20 MG, QD
     Route: 065
  14. AMIODARONE [Suspect]
     Active Substance: AMIODARONE
     Dosage: 200 MG, QD (5 DAY A WEEK)
     Route: 065

REACTIONS (11)
  - Diarrhoea [Recovering/Resolving]
  - Dyspnoea [Unknown]
  - Pneumonia [Unknown]
  - Palpitations [Unknown]
  - Pulmonary toxicity [Recovered/Resolved]
  - Atrial fibrillation [Unknown]
  - Fatigue [Unknown]
  - Oedema peripheral [Unknown]
  - Exercise tolerance decreased [Unknown]
  - Cough [Unknown]
  - Oliguria [Unknown]
